FAERS Safety Report 7170513-0 (Version None)
Quarter: 2010Q4

REPORT INFORMATION
  Report Type: 
  Country: None (occurrence: None)
  Receive Date: 20101217
  Receipt Date: 20101206
  Transmission Date: 20110411
  Serious: Yes (Hospitalization, Other)
  Sender: FDA-Public Use
  Company Number: PHHY2010JP64280

PATIENT
  Sex: Male

DRUGS (9)
  1. AFINITOR [Suspect]
     Indication: METASTATIC RENAL CELL CARCINOMA
     Dosage: 10 MG/DAY
     Route: 048
     Dates: start: 20100831, end: 20100910
  2. PURSENNID [Concomitant]
     Dosage: 12 MG
     Route: 048
     Dates: start: 20100610
  3. ADALAT CC [Concomitant]
     Dosage: 60MG
     Route: 048
     Dates: start: 20100204
  4. OLMETEC [Concomitant]
     Dosage: 20MG
     Route: 048
     Dates: start: 20100115
  5. TAGAMET [Concomitant]
     Dosage: 200MG
     Route: 048
     Dates: start: 20100719
  6. NAIXAN [Concomitant]
     Dosage: 100MG
     Route: 048
     Dates: start: 20070601
  7. LENDORMIN D [Concomitant]
     Dosage: 0.25MG
     Route: 048
     Dates: start: 20100817
  8. NOVORAPID [Concomitant]
     Dosage: UNK
     Route: 042
     Dates: start: 20070601
  9. GLOVENIN I [Suspect]

REACTIONS (6)
  - C-REACTIVE PROTEIN INCREASED [None]
  - CONDITION AGGRAVATED [None]
  - GENERAL PHYSICAL HEALTH DETERIORATION [None]
  - LIVER ABSCESS [None]
  - MALIGNANT NEOPLASM PROGRESSION [None]
  - PNEUMONIA ASPIRATION [None]
